FAERS Safety Report 23654933 (Version 2)
Quarter: 2024Q2

REPORT INFORMATION
  Report Type: Spontaneous
  Country: US (occurrence: US)
  Receive Date: 20240320
  Receipt Date: 20240523
  Transmission Date: 20240716
  Serious: No
  Sender: FDA-Public Use
  Company Number: US-Calliditas-2024CAL00444

PATIENT
  Age: 32 Year
  Sex: Female

DRUGS (1)
  1. TARPEYO [Suspect]
     Active Substance: BUDESONIDE
     Indication: Nephritic syndrome
     Dosage: 16MG (4MG CAPSULES) ONCE DAILY
     Route: 048
     Dates: start: 20240214

REACTIONS (5)
  - Migraine [Unknown]
  - Fatigue [Unknown]
  - Restlessness [Unknown]
  - Off label use [Unknown]
  - Menstrual disorder [Unknown]
